FAERS Safety Report 14475789 (Version 16)
Quarter: 2020Q3

REPORT INFORMATION
  Report Type: Spontaneous
  Country: BR (occurrence: BR)
  Receive Date: 20180201
  Receipt Date: 20200706
  Transmission Date: 20201102
  Serious: Yes (Hospitalization, Other)
  Sender: FDA-Public Use
  Company Number: BR-PFIZER INC-2017540553

PATIENT
  Age: 52 Year
  Sex: Male

DRUGS (12)
  1. TAMISA [Concomitant]
     Active Substance: ETHINYL ESTRADIOL\GESTODENE
     Dosage: UNK
  2. SUTENT [Suspect]
     Active Substance: SUNITINIB MALATE
     Indication: RENAL CANCER METASTATIC
     Dosage: 50 MG, CYCLIC (1 TABLET 1X/DAY FOR 28 DAYS, PAUSE FOR 14 DAYS)
     Dates: start: 20171215
  3. DIPYRONE [Concomitant]
     Active Substance: DIPYRONE
     Dosage: UNK, AS NEEDED (SPORADICALLY)
  4. AMITRIPTYLINE HCL [Concomitant]
     Active Substance: AMITRIPTYLINE
     Dosage: UNK
  5. SUTENT [Suspect]
     Active Substance: SUNITINIB MALATE
     Dosage: 50 MG, CYCLIC
     Dates: end: 201809
  6. SUTENT [Suspect]
     Active Substance: SUNITINIB MALATE
     Dosage: UNK
  7. SUTENT [Suspect]
     Active Substance: SUNITINIB MALATE
     Dosage: 25 MG, (DAILY 1 TABLET OF 25MG, 1X/DAY, STRAIGHT USE)
     Dates: start: 201810
  8. PANTOPRAZOLE [Concomitant]
     Active Substance: PANTOPRAZOLE
     Indication: GASTRITIS
     Dosage: UNK, DAILY
  9. ESOMEPRAZOLE. [Concomitant]
     Active Substance: ESOMEPRAZOLE MAGNESIUM
     Dosage: UNK
  10. SUTENT [Suspect]
     Active Substance: SUNITINIB MALATE
     Dosage: 25 MG, 1X/DAY
  11. TYLEX /00116401/ [Concomitant]
     Active Substance: ACETAMINOPHEN\CODEINE PHOSPHATE
     Dosage: UNK, AS NEEDED (SPORADICALLY)
  12. ANNITA [Concomitant]
     Active Substance: NITAZOXANIDE
     Indication: DYSPEPSIA
     Dosage: 500 MG, UNK

REACTIONS (35)
  - Musculoskeletal pain [Not Recovered/Not Resolved]
  - Reflux gastritis [Recovering/Resolving]
  - Condition aggravated [Recovering/Resolving]
  - Wound [Recovering/Resolving]
  - Fatigue [Recovering/Resolving]
  - Constipation [Recovered/Resolved]
  - Diarrhoea [Recovered/Resolved]
  - Retching [Recovered/Resolved]
  - Erythema [Not Recovered/Not Resolved]
  - Arthralgia [Not Recovered/Not Resolved]
  - Blood pressure fluctuation [Not Recovered/Not Resolved]
  - Pain in extremity [Recovered/Resolved]
  - Pharyngeal inflammation [Not Recovered/Not Resolved]
  - Dysentery [Recovering/Resolving]
  - Malaise [Recovered/Resolved]
  - Feeling of body temperature change [Recovered/Resolved]
  - Platelet count decreased [Unknown]
  - Hyperkeratosis [Not Recovered/Not Resolved]
  - Skin atrophy [Not Recovered/Not Resolved]
  - Skin lesion [Unknown]
  - Pain [Not Recovered/Not Resolved]
  - Arthralgia [Not Recovered/Not Resolved]
  - Lip dry [Recovered/Resolved]
  - Memory impairment [Not Recovered/Not Resolved]
  - Fear [Recovered/Resolved]
  - Discomfort [Unknown]
  - Blood triglycerides increased [Recovered/Resolved]
  - Cerebral disorder [Recovered/Resolved]
  - Musculoskeletal discomfort [Not Recovered/Not Resolved]
  - Inflammation [Not Recovered/Not Resolved]
  - Circumstance or information capable of leading to medication error [Unknown]
  - Insomnia [Recovering/Resolving]
  - Myalgia [Recovering/Resolving]
  - Blister [Not Recovered/Not Resolved]
  - Arthropathy [Unknown]

NARRATIVE: CASE EVENT DATE: 201711
